FAERS Safety Report 25030639 (Version 3)
Quarter: 2025Q3

REPORT INFORMATION
  Report Type: Report from Study
  Country: EU (occurrence: EU)
  Receive Date: 20250303
  Receipt Date: 20250805
  Transmission Date: 20251020
  Serious: Yes (Other)
  Sender: JOHNSON AND JOHNSON
  Company Number: None

PATIENT
  Age: 62 Year
  Sex: Male
  Weight: 58 kg

DRUGS (6)
  1. RILPIVIRINE [Suspect]
     Active Substance: RILPIVIRINE
     Indication: HIV infection
     Route: 030
     Dates: start: 20250120, end: 20250120
  2. RILPIVIRINE [Suspect]
     Active Substance: RILPIVIRINE
     Dates: start: 20250421, end: 20250421
  3. VOCABRIA [Suspect]
     Active Substance: CABOTEGRAVIR SODIUM
     Indication: HIV infection
     Dates: start: 20250120, end: 20250120
  4. VOCABRIA [Suspect]
     Active Substance: CABOTEGRAVIR SODIUM
     Dates: start: 20250421, end: 20250421
  5. Lansoprazol 30mg [Concomitant]
     Indication: Product used for unknown indication
  6. Lansoprazol 30mg [Concomitant]

REACTIONS (8)
  - Injection site induration [Recovered/Resolved]
  - Injection site warmth [Recovered/Resolved]
  - Injection site discomfort [Recovered/Resolved]
  - Injection site pain [Recovered/Resolved]
  - Pain [Recovered/Resolved]
  - Injection site induration [Recovered/Resolved]
  - Injection site discomfort [Recovered/Resolved]
  - Injection site pain [Recovered/Resolved]

NARRATIVE: CASE EVENT DATE: 20250120
